FAERS Safety Report 9234402 (Version 2)
Quarter: 2013Q2

REPORT INFORMATION
  Report Type: Spontaneous
  Country: US (occurrence: US)
  Receive Date: 20130416
  Receipt Date: 20130610
  Transmission Date: 20140414
  Serious: Yes (Other)
  Sender: FDA-Public Use
  Company Number: US-GLAXOSMITHKLINE-A0754434A

PATIENT
  Age: 51 Year
  Sex: Female
  Weight: 145.5 kg

DRUGS (9)
  1. ADVAIR [Suspect]
     Indication: ASTHMA
     Dosage: 1PUFF TWICE PER DAY
     Route: 055
     Dates: start: 2005, end: 20081103
  2. MONOPRIL [Concomitant]
     Indication: PRODUCT USED FOR UNKNOWN INDICATION
     Route: 065
  3. LANTUS [Concomitant]
     Indication: PRODUCT USED FOR UNKNOWN INDICATION
     Route: 065
  4. HUMALOG [Concomitant]
     Indication: PRODUCT USED FOR UNKNOWN INDICATION
     Route: 065
  5. ALLEGRA [Concomitant]
     Indication: PRODUCT USED FOR UNKNOWN INDICATION
     Route: 048
  6. NASACORT [Concomitant]
     Indication: PRODUCT USED FOR UNKNOWN INDICATION
     Route: 045
  7. ALLERGY MEDICINE [Concomitant]
  8. INSULIN [Concomitant]
  9. BLOOD PRESSURE MEDICATION [Concomitant]

REACTIONS (13)
  - Corneal abrasion [Recovered/Resolved]
  - Candida infection [Unknown]
  - Eye penetration [Unknown]
  - Dry eye [Unknown]
  - Eye pruritus [Unknown]
  - Eye pain [Unknown]
  - Emotional distress [Unknown]
  - Feeling hot [Unknown]
  - Nausea [Unknown]
  - Asthenopia [Unknown]
  - Cataract [Not Recovered/Not Resolved]
  - Eye disorder [Not Recovered/Not Resolved]
  - Impaired healing [Recovered/Resolved]
